FAERS Safety Report 23837312 (Version 1)
Quarter: 2024Q2

REPORT INFORMATION
  Report Type: Other
  Country: US (occurrence: US)
  Receive Date: 20240509
  Receipt Date: 20240509
  Transmission Date: 20240716
  Serious: Yes (Hospitalization)
  Sender: FDA-Public Use
  Company Number: US-Bion-013004

PATIENT
  Age: 12 Year
  Sex: Female

DRUGS (2)
  1. OXYBUTYNIN CHLORIDE [Suspect]
     Active Substance: OXYBUTYNIN CHLORIDE
     Indication: Enuresis
     Route: 048
  2. DIPHENHYDRAMINE [Concomitant]
     Active Substance: DIPHENHYDRAMINE
     Indication: Rhinitis allergic

REACTIONS (3)
  - Toxicity to various agents [Unknown]
  - Drug interaction [Unknown]
  - Accidental overdose [Unknown]
